FAERS Safety Report 20545363 (Version 1)
Quarter: 2022Q1

REPORT INFORMATION
  Report Type: Spontaneous
  Country: US (occurrence: None)
  Receive Date: 20220302
  Receipt Date: 20220302
  Transmission Date: 20220423
  Serious: Yes (Other)
  Sender: FDA-Public Use
  Company Number: None

PATIENT
  Age: 87 Year
  Sex: Female

DRUGS (2)
  1. CAPECITABINE [Suspect]
     Active Substance: CAPECITABINE
     Indication: Gastric cancer
     Dosage: 1000 MG TWICE DAILY   BID ORAL
     Route: 048
     Dates: start: 202109, end: 20220203
  2. CAPECITABINE [Suspect]
     Active Substance: CAPECITABINE

REACTIONS (5)
  - Liver function test abnormal [None]
  - Asthenia [None]
  - Fluid retention [None]
  - Drug ineffective [None]
  - Fall [None]

NARRATIVE: CASE EVENT DATE: 20220103
